FAERS Safety Report 20680435 (Version 2)
Quarter: 2022Q2

REPORT INFORMATION
  Report Type: Report from Study
  Country: AU (occurrence: AU)
  Receive Date: 20220406
  Receipt Date: 20220628
  Transmission Date: 20220721
  Serious: Yes (Hospitalization)
  Sender: FDA-Public Use
  Company Number: AU-ABBVIE-21P-008-4215450-00

PATIENT
  Age: 19 Year
  Sex: Male

DRUGS (25)
  1. PLACEBO [Suspect]
     Active Substance: UNSPECIFIED INGREDIENT
     Indication: Dermatitis atopic
     Route: 048
     Dates: start: 20200115, end: 20200510
  2. UPADACITINIB [Suspect]
     Active Substance: UPADACITINIB
     Indication: Dermatitis atopic
     Route: 048
     Dates: start: 20200511, end: 20211223
  3. UPADACITINIB [Suspect]
     Active Substance: UPADACITINIB
     Route: 048
     Dates: start: 20220307
  4. BETAMETHASONE DIPROPIONATE [Concomitant]
     Active Substance: BETAMETHASONE DIPROPIONATE
     Indication: Dermatitis atopic
     Dosage: 1 APPLICATION
     Route: 061
     Dates: start: 2019, end: 20200108
  5. BETAMETHASONE DIPROPIONATE [Concomitant]
     Active Substance: BETAMETHASONE DIPROPIONATE
     Indication: Dermatitis atopic
     Dosage: 1 APPLICATION
     Route: 061
     Dates: start: 20200210
  6. ELIDEL [Concomitant]
     Active Substance: PIMECROLIMUS
     Indication: Dermatitis atopic
     Dosage: 1 APPLICATION
     Route: 061
     Dates: start: 2016, end: 20200108
  7. ELIDEL [Concomitant]
     Active Substance: PIMECROLIMUS
     Indication: Dermatitis atopic
     Dosage: 1 APPLICATION
     Route: 061
     Dates: start: 20200210
  8. SERETIDE [Concomitant]
     Active Substance: FLUTICASONE PROPIONATE\SALMETEROL XINAFOATE
     Indication: Asthma
     Route: 055
     Dates: start: 2003
  9. VENTOLIN [Concomitant]
     Active Substance: ALBUTEROL SULFATE
     Indication: Asthma
     Route: 055
     Dates: start: 2003
  10. EPIPEN [Concomitant]
     Active Substance: EPINEPHRINE
     Indication: Anaphylactic reaction
     Route: 030
     Dates: start: 2009
  11. CETIRIZINE [Concomitant]
     Active Substance: CETIRIZINE HYDROCHLORIDE
     Indication: Seasonal allergy
     Route: 048
     Dates: start: 2003
  12. CETIRIZINE [Concomitant]
     Active Substance: CETIRIZINE HYDROCHLORIDE
     Indication: Allergy to animal
  13. CETIRIZINE [Concomitant]
     Active Substance: CETIRIZINE HYDROCHLORIDE
     Indication: Mycotic allergy
  14. CETIRIZINE [Concomitant]
     Active Substance: CETIRIZINE HYDROCHLORIDE
     Indication: Mite allergy
  15. CETIRIZINE [Concomitant]
     Active Substance: CETIRIZINE HYDROCHLORIDE
     Indication: Seasonal allergy
  16. ADVANTAN LOTION [Concomitant]
     Indication: Dermatitis atopic
     Dosage: 1 APPLICATION (FREQ:  SPARINGLY)
     Route: 061
     Dates: start: 2003
  17. ADVANTAN LOTION [Concomitant]
     Dosage: 1 APPLICATION (FREQ:  SPARINGLY)
     Route: 061
     Dates: start: 20200210
  18. FEXOFENADINE HYDROCHLORIDE [Concomitant]
     Active Substance: FEXOFENADINE HYDROCHLORIDE
     Indication: Seasonal allergy
     Route: 048
     Dates: start: 20200822
  19. FEXOFENADINE HYDROCHLORIDE [Concomitant]
     Active Substance: FEXOFENADINE HYDROCHLORIDE
     Indication: Allergy to animal
  20. FEXOFENADINE HYDROCHLORIDE [Concomitant]
     Active Substance: FEXOFENADINE HYDROCHLORIDE
     Indication: Mycotic allergy
  21. FEXOFENADINE HYDROCHLORIDE [Concomitant]
     Active Substance: FEXOFENADINE HYDROCHLORIDE
     Indication: Mite allergy
  22. FEXOFENADINE HYDROCHLORIDE [Concomitant]
     Active Substance: FEXOFENADINE HYDROCHLORIDE
     Indication: Seasonal allergy
  23. LAMISIL [Concomitant]
     Active Substance: TERBINAFINE HYDROCHLORIDE
     Indication: Tinea pedis
     Dosage: 1 APPLICATION
     Route: 061
     Dates: start: 20201026
  24. KENACOMB 15G [Concomitant]
     Indication: Melanocytic naevus
     Dosage: 1 APPLICATION
     Route: 061
     Dates: start: 20210404
  25. SORBOLENE [Concomitant]
     Indication: Product used for unknown indication
     Route: 061
     Dates: start: 200912

REACTIONS (1)
  - Hepatitis viral [Not Recovered/Not Resolved]

NARRATIVE: CASE EVENT DATE: 20211221
